FAERS Safety Report 5132727-0 (Version None)
Quarter: 2006Q4

REPORT INFORMATION
  Report Type: 
  Country: None (occurrence: None)
  Receive Date: 20061023
  Receipt Date: 20061005
  Transmission Date: 20070319
  Serious: Yes (Other)
  Sender: FDA-Public Use
  Company Number: FR-GLAXOSMITHKLINE-B0441000A

PATIENT
  Age: 25 Year
  Sex: Male
  Weight: 67 kg

DRUGS (1)
  1. TELZIR [Suspect]
     Indication: HIV INFECTION
     Dosage: 700MG TWICE PER DAY
     Route: 048
     Dates: start: 20050729

REACTIONS (3)
  - CYTOLYTIC HEPATITIS [None]
  - HEPATITIS C [None]
  - TRANSAMINASES INCREASED [None]
